FAERS Safety Report 22531776 (Version 2)
Quarter: 2023Q2

REPORT INFORMATION
  Report Type: Other
  Country: MX (occurrence: None)
  Receive Date: 20230607
  Receipt Date: 20230620
  Transmission Date: 20230721
  Serious: Yes (Other)
  Sender: FDA-Public Use
  Company Number: MX-ROCHE-3361870

PATIENT
  Sex: Female
  Weight: 72.5 kg

DRUGS (7)
  1. TRASTUZUMAB [Suspect]
     Active Substance: TRASTUZUMAB
     Indication: Breast cancer
     Route: 065
  2. PERTUZUMAB [Suspect]
     Active Substance: PERTUZUMAB
     Indication: Breast cancer
     Route: 065
  3. ADO-TRASTUZUMAB EMTANSINE [Suspect]
     Active Substance: ADO-TRASTUZUMAB EMTANSINE
     Indication: Breast cancer
     Route: 065
  4. DOCETAXEL [Concomitant]
     Active Substance: DOCETAXEL
     Indication: Breast cancer
  5. ONDANSETRON [Concomitant]
     Active Substance: ONDANSETRON
  6. ACETAMINOPHEN\TRAMADOL [Concomitant]
     Active Substance: ACETAMINOPHEN\TRAMADOL
     Dosage: TRAMADOL HYDROCHLORIDE 37.5 MG + PARACETAMOL 325.0 MG, DURING 12 DAYS
  7. PREGABALIN [Concomitant]
     Active Substance: PREGABALIN
     Dosage: FOR 28 DAYS

REACTIONS (18)
  - Hypertension [Unknown]
  - Osteoarthritis [Unknown]
  - Drug hypersensitivity [Unknown]
  - Procedural dizziness [Unknown]
  - Nausea [Unknown]
  - Breast mass [Unknown]
  - Lymph node palpable [Unknown]
  - Hepatic neoplasm [Unknown]
  - Red blood cell count decreased [Unknown]
  - Lymphocyte count decreased [Unknown]
  - Blood urea increased [Unknown]
  - Blood lactate dehydrogenase increased [Unknown]
  - Blood bilirubin increased [Unknown]
  - Blood bilirubin unconjugated increased [Unknown]
  - Necrosis [Unknown]
  - Hepatic neoplasm [Unknown]
  - Metastasis [Unknown]
  - Lymphadenopathy [Unknown]
